FAERS Safety Report 22036282 (Version 4)
Quarter: 2024Q1

REPORT INFORMATION
  Report Type: Spontaneous
  Country: FR (occurrence: FR)
  Receive Date: 20230225
  Receipt Date: 20240221
  Transmission Date: 20240409
  Serious: Yes (Other)
  Sender: FDA-Public Use
  Company Number: FR-EMA-20120425-mgevhumanwt-103003687

PATIENT
  Age: 37 Year

DRUGS (22)
  1. PREDNISONE [Suspect]
     Active Substance: PREDNISONE
     Indication: Hodgkin^s disease
     Dosage: 2MOPPBVD (TWO CYCLES)
     Route: 065
  2. MELPHALAN [Suspect]
     Active Substance: MELPHALAN
     Indication: Hodgkin^s disease
     Dosage: TWO CYCLES
     Route: 065
  3. MELPHALAN [Suspect]
     Active Substance: MELPHALAN
     Dosage: BEAM
     Route: 065
  4. CYTARABINE [Suspect]
     Active Substance: CYTARABINE
     Indication: Hodgkin^s disease
     Dosage: (3 WEEK) ESHAP CHEMOTHERAPY ADMINISTERED ONCE EVERY 3 WEEKS
     Route: 065
  5. CYTARABINE [Suspect]
     Active Substance: CYTARABINE
     Dosage: BEAM
     Route: 065
  6. ADRIAMYCIN [Suspect]
     Active Substance: DOXORUBICIN HYDROCHLORIDE
     Indication: Hodgkin^s disease
     Dosage: 2ABVD (TWO CYCLES)
     Route: 065
  7. BLEOMYCIN [Suspect]
     Active Substance: BLEOMYCIN SULFATE
     Indication: Hodgkin^s disease
     Dosage: 2MOPPBVD (TWO CYCLES)
     Route: 065
  8. BLEOMYCIN [Suspect]
     Active Substance: BLEOMYCIN SULFATE
     Dosage: 2ABVD(TWOCYCLES)
     Route: 065
  9. CISPLATIN [Suspect]
     Active Substance: CISPLATIN
     Indication: Hodgkin^s disease
     Dosage: (3 WEEK) ESHAP CHEMOTHERAPY ADMINISTERED ONCE EVERY 3 WEEKS
     Route: 065
  10. CARMUSTINE [Suspect]
     Active Substance: CARMUSTINE
     Indication: Product used for unknown indication
     Dosage: BEAM
     Route: 065
  11. MECHLORETHAMINE [Suspect]
     Active Substance: MECHLORETHAMINE
     Indication: Hodgkin^s disease
     Dosage: 2MOPPBVD (TWO CYCLES)
     Route: 065
  12. DACARBAZINE [Suspect]
     Active Substance: DACARBAZINE
     Indication: Hodgkin^s disease
     Dosage: 2MOPPBVD (TWO CYCLES)
     Route: 065
  13. DACARBAZINE [Suspect]
     Active Substance: DACARBAZINE
     Dosage: 2ABVD(TWOCYCLES)
     Route: 065
  14. ETOPOSIDE [Suspect]
     Active Substance: ETOPOSIDE
     Indication: Hodgkin^s disease
     Dosage: (3 WEEK) ESHAP CHEMOTHERAPY ADMINISTERED ONCE EVERY 3 WEEKS
     Route: 065
  15. ETOPOSIDE [Suspect]
     Active Substance: ETOPOSIDE
     Dosage: BEAM
     Route: 065
  16. METHYLPREDNISOLONE [Suspect]
     Active Substance: METHYLPREDNISOLONE
     Indication: Hodgkin^s disease
     Dosage: ESHAP CHEMOTHERAPY ADMINISTERED ONCE EVERY 3 WEEKS
     Route: 065
  17. PROCARBAZINE [Suspect]
     Active Substance: PROCARBAZINE
     Indication: Hodgkin^s disease
     Dosage: 2MOPPBVD (TWO CYCLES)
     Route: 065
  18. REVLIMID [Suspect]
     Active Substance: LENALIDOMIDE
     Indication: Hodgkin^s disease
     Dosage: 15 MILLIGRAM, ONCE A DAY, 15 MG DAILY; 2 CYCLES
     Route: 065
  19. VINDESINE [Suspect]
     Active Substance: VINDESINE
     Indication: Hodgkin^s disease
     Dosage: 2MOPPBVD (TWO CYCLES)
     Route: 065
  20. VINDESINE [Suspect]
     Active Substance: VINDESINE
     Dosage: 2ABVD(TWOCYCLES)
     Route: 065
  21. VINCRISTINE [Suspect]
     Active Substance: VINCRISTINE
     Indication: Hodgkin^s disease
     Dosage: 2MOPPBVD (TWO CYCLES)
     Route: 065
  22. GRANULOCYTE COLONY-STIMULATING FACTOR NOS [Concomitant]
     Active Substance: GRANULOCYTE COLONY-STIMULATING FACTOR NOS
     Indication: Prophylaxis
     Dosage: 5 G/KG/DAY FOR 5 DAYS FROM DAY 8 OF EACH COURSE
     Route: 065

REACTIONS (4)
  - Hodgkin^s disease recurrent [Unknown]
  - Anaemia [Recovered/Resolved]
  - Thrombocytopenia [Recovered/Resolved]
  - Neutropenia [Recovered/Resolved]
